FAERS Safety Report 8757077 (Version 1)
Quarter: 2012Q4

REPORT INFORMATION
  Report Type: 
  Country: GB (occurrence: GB)
  Receive Date: 20120828
  Receipt Date: 20120828
  Transmission Date: 20130627
  Serious: Yes (Disabling)
  Sender: FDA-Public Use
  Company Number: GB-MYLANLABS-2012S1016766

PATIENT
  Age: 22 Year
  Sex: Male
  Weight: 70 kg

DRUGS (2)
  1. FINASTERIDE [Suspect]
     Indication: ALOPECIA
     Route: 048
     Dates: start: 20120515, end: 20120615
  2. RANITIDINE [Concomitant]
     Indication: PRODUCT USED FOR UNKNOWN INDICATION

REACTIONS (1)
  - Testicular atrophy [Unknown]
